FAERS Safety Report 21333197 (Version 2)
Quarter: 2023Q2

REPORT INFORMATION
  Report Type: Spontaneous
  Country: GB (occurrence: GB)
  Receive Date: 20220914
  Receipt Date: 20230418
  Transmission Date: 20230721
  Serious: Yes (Hospitalization, Other)
  Sender: FDA-Public Use
  Company Number: None

PATIENT
  Age: 26 Year
  Sex: Female

DRUGS (1)
  1. QUETIAPINE [Suspect]
     Active Substance: QUETIAPINE
     Indication: Mood swings
     Dosage: 800 MG
     Route: 065
     Dates: end: 20220829

REACTIONS (19)
  - Muscle rigidity [Recovering/Resolving]
  - Mental impairment [Unknown]
  - Tremor [Unknown]
  - Aphasia [Unknown]
  - Incontinence [Unknown]
  - Mutism [Unknown]
  - Body temperature increased [Unknown]
  - Hyperhidrosis [Unknown]
  - Device electrical impedance issue [Unknown]
  - Catatonia [Unknown]
  - Tachycardia [Unknown]
  - Prescribed overdose [Unknown]
  - Neuromyopathy [Unknown]
  - Mental disorder [Unknown]
  - Restlessness [Unknown]
  - Pyrexia [Unknown]
  - Anal incontinence [Unknown]
  - Urinary incontinence [Unknown]
  - Product prescribing issue [Unknown]

NARRATIVE: CASE EVENT DATE: 20220801
